FAERS Safety Report 6535986-2 (Version None)
Quarter: 2010Q1

REPORT INFORMATION
  Report Type: 
  Country: None (occurrence: None)
  Receive Date: 20100113
  Receipt Date: 20100107
  Transmission Date: 20100710
  Serious: Yes (Hospitalization)
  Sender: FDA-Public Use
  Company Number: B0625040A

PATIENT
  Sex: Male
  Weight: 68 kg

DRUGS (6)
  1. LAPATINIB [Suspect]
     Dosage: 1000MG PER DAY
     Route: 048
     Dates: start: 20091209
  2. OXALIPLATIN [Suspect]
     Dosage: 185MG PER DAY
     Route: 042
     Dates: start: 20091209
  3. FLUOROURACIL [Suspect]
     Dosage: 4300MG PER DAY
     Route: 042
     Dates: start: 20091209
  4. NOVAMINSULFON [Suspect]
     Indication: PAIN
     Dosage: 30DROP THREE TIMES PER DAY
     Route: 048
     Dates: start: 20091104
  5. METOCLOPRAMIDE [Suspect]
     Dosage: 20DROP THREE TIMES PER DAY
     Route: 048
     Dates: start: 20091118
  6. FOLINIC ACID [Suspect]
     Dosage: 430MG PER DAY
     Route: 042
     Dates: start: 20091209

REACTIONS (6)
  - ELECTROCARDIOGRAM ST SEGMENT ABNORMAL [None]
  - HYPOKALAEMIA [None]
  - HYPOPHAGIA [None]
  - HYPOTENSION [None]
  - LOSS OF CONSCIOUSNESS [None]
  - SYNCOPE [None]
